FAERS Safety Report 14239859 (Version 1)
Quarter: 2017Q4

REPORT INFORMATION
  Report Type: Spontaneous
  Country: US (occurrence: US)
  Receive Date: 20171128
  Receipt Date: 20171128
  Transmission Date: 20180321
  Serious: Yes (Other)
  Sender: FDA-Public Use
  Company Number: None

PATIENT
  Age: 104 Year
  Sex: Male
  Weight: 67.5 kg

DRUGS (14)
  1. CARVEDILOL. [Concomitant]
     Active Substance: CARVEDILOL
  2. FOLIC ACID. [Concomitant]
     Active Substance: FOLIC ACID
  3. CAPECITABINE. [Concomitant]
     Active Substance: CAPECITABINE
  4. COQ10 [Concomitant]
     Active Substance: UBIDECARENONE
  5. LEVOTHYROXINE. [Concomitant]
     Active Substance: LEVOTHYROXINE
  6. EPLERENONE. [Concomitant]
     Active Substance: EPLERENONE
  7. LOSARTAN. [Concomitant]
     Active Substance: LOSARTAN
  8. CALCIUM [Concomitant]
     Active Substance: CALCIUM
  9. XARELTO [Concomitant]
     Active Substance: RIVAROXABAN
  10. VITAMIN D3 [Concomitant]
     Active Substance: CHOLECALCIFEROL
  11. IBRANCE [Suspect]
     Active Substance: PALBOCICLIB
     Indication: BREAST CANCER
     Route: 048
     Dates: start: 20170719, end: 20171128
  12. ASPIRIN. [Concomitant]
     Active Substance: ASPIRIN
  13. VITAMIN B12 [Concomitant]
     Active Substance: CYANOCOBALAMIN
  14. FASLODEX [Concomitant]
     Active Substance: FULVESTRANT

REACTIONS (1)
  - Disease progression [None]
